FAERS Safety Report 18321615 (Version 1)
Quarter: 2020Q3

REPORT INFORMATION
  Report Type: Report from Study
  Country: None (occurrence: DE)
  Receive Date: 20200929
  Receipt Date: 20200929
  Transmission Date: 20201103
  Serious: Yes (Death)
  Sender: FDA-Public Use
  Company Number: DE-ABBVIE-20K-062-3571436-00

PATIENT
  Sex: Male

DRUGS (4)
  1. TAMSULIN [Concomitant]
     Indication: PRODUCT USED FOR UNKNOWN INDICATION
  2. DUODOPA [Suspect]
     Active Substance: CARBIDOPA\LEVODOPA
     Indication: PARKINSON^S DISEASE
     Dosage: MD 10.0 ML; CRD 3.9 ML/H; ED 1.5 ML
     Route: 050
     Dates: start: 20160915, end: 202009
  3. L?THYROXIN [Concomitant]
     Active Substance: LEVOTHYROXINE SODIUM
     Indication: PRODUCT USED FOR UNKNOWN INDICATION
  4. DUODOPA [Suspect]
     Active Substance: CARBIDOPA\LEVODOPA
     Dosage: MD 10.0 ML; CRD 3.5 ML/H; ED 1.5 ML
     Route: 050
     Dates: start: 202009

REACTIONS (1)
  - Nasopharyngitis [Fatal]
